FAERS Safety Report 7633230-6 (Version None)
Quarter: 2011Q3

REPORT INFORMATION
  Report Type: 
  Country: None (occurrence: None)
  Receive Date: 20110725
  Receipt Date: 20110713
  Transmission Date: 20111222
  Serious: Yes (Other)
  Sender: FDA-Public Use
  Company Number: US-ROCHE-789747

PATIENT
  Sex: Male
  Weight: 60 kg

DRUGS (2)
  1. LOPERAMIDE [Concomitant]
     Dates: start: 20110519
  2. CAPECITABINE [Suspect]
     Indication: GLIOMA
     Dosage: DATE OF LAST DOSE PRIOR TO SAE: 25 MAY 2011
     Route: 048
     Dates: start: 20110517

REACTIONS (1)
  - DYSPHAGIA [None]
